FAERS Safety Report 13212724 (Version 2)
Quarter: 2017Q1

REPORT INFORMATION
  Report Type: Spontaneous
  Country: BR (occurrence: BR)
  Receive Date: 20170210
  Receipt Date: 20170221
  Transmission Date: 20170428
  Serious: Yes (Other)
  Sender: FDA-Public Use
  Company Number: BR-PFIZER INC-2017053906

PATIENT
  Age: 59 Year
  Sex: Female
  Weight: 68 kg

DRUGS (6)
  1. BRASART BCC [Concomitant]
     Indication: HYPERTENSION
     Dosage: UNK
  2. ALPRAZOLAM. [Concomitant]
     Active Substance: ALPRAZOLAM
     Indication: SLEEP DISORDER
     Dosage: UNK
  3. PURAN [Concomitant]
     Active Substance: LEVOTHYROXINE SODIUM
     Indication: THYROID DISORDER
     Dosage: UNK
  4. LIPITOR [Suspect]
     Active Substance: ATORVASTATIN CALCIUM
     Indication: BLOOD CHOLESTEROL INCREASED
     Dosage: 1 TABLET OF STRENGTH 40 MG, DAILY
     Route: 048
     Dates: start: 20170202, end: 20170205
  5. LIPLESS [Suspect]
     Active Substance: CIPROFIBRATE
     Indication: BLOOD CHOLESTEROL INCREASED
     Dosage: 1 TABLET OF STRENGTH 100 MG, DAILY
     Route: 048
     Dates: start: 20170202
  6. LIPLESS [Suspect]
     Active Substance: CIPROFIBRATE
     Indication: BLOOD TRIGLYCERIDES

REACTIONS (21)
  - Asthenia [Recovered/Resolved]
  - Abasia [Recovered/Resolved]
  - Insomnia [Recovered/Resolved]
  - Eating disorder [Recovered/Resolved]
  - Vomiting [Recovered/Resolved]
  - Dysphonia [Recovered/Resolved]
  - Visual impairment [Recovered/Resolved]
  - Retching [Recovered/Resolved]
  - Mental impairment [Recovered/Resolved]
  - Cold sweat [Recovered/Resolved]
  - Paraesthesia [Recovered/Resolved]
  - Vision blurred [Recovered/Resolved]
  - Bone pain [Recovered/Resolved]
  - Muscular weakness [Recovered/Resolved]
  - Diarrhoea [Recovered/Resolved]
  - Headache [Recovered/Resolved]
  - Memory impairment [Recovered/Resolved]
  - Speech disorder [Recovered/Resolved]
  - Tremor [Recovered/Resolved]
  - Dizziness [Recovered/Resolved]
  - Muscle spasms [Recovered/Resolved]

NARRATIVE: CASE EVENT DATE: 201702
